FAERS Safety Report 22696211 (Version 2)
Quarter: 2023Q4

REPORT INFORMATION
  Report Type: Spontaneous
  Country: BR (occurrence: BR)
  Receive Date: 20230712
  Receipt Date: 20231110
  Transmission Date: 20240110
  Serious: Yes (Other)
  Sender: FDA-Public Use
  Company Number: BR-002147023-NVSC2023BR151588

PATIENT

DRUGS (1)
  1. OMALIZUMAB [Suspect]
     Active Substance: OMALIZUMAB
     Indication: Chronic spontaneous urticaria
     Dosage: UNK
     Route: 065

REACTIONS (7)
  - Anaphylactic reaction [Unknown]
  - Oropharyngeal pain [Unknown]
  - Throat tightness [Unknown]
  - Skin lesion [Unknown]
  - Brain fog [Unknown]
  - Swelling [Unknown]
  - Weight increased [Unknown]
